FAERS Safety Report 10723384 (Version 6)
Quarter: 2019Q4

REPORT INFORMATION
  Report Type: Spontaneous
  Country: CA (occurrence: CA)
  Receive Date: 20150120
  Receipt Date: 20191211
  Transmission Date: 20200122
  Serious: Yes (Hospitalization, Disabling, Other)
  Sender: FDA-Public Use
  Company Number: CA-MERCK-1501CAN006463

PATIENT
  Age: 42 Year
  Sex: Female

DRUGS (2)
  1. SINGULAIR [Suspect]
     Active Substance: MONTELUKAST SODIUM
     Indication: HYPERSENSITIVITY
     Dosage: 10 MG, QD (ONE 10 MG TABLET, PER DAY), STOPPED THE MEDICATION FROM JUNE 2019 TO MID-SEPTEMBER 2019
     Route: 048
     Dates: start: 201909
  2. SINGULAIR [Suspect]
     Active Substance: MONTELUKAST SODIUM
     Indication: ASTHMA
     Dosage: 10 MG, QD (ONE 10 MG TABLET, PER DAY)
     Route: 048
     Dates: start: 2009, end: 201906

REACTIONS (14)
  - Mobility decreased [Not Recovered/Not Resolved]
  - Osteoarthritis [Recovered/Resolved]
  - Anxiety [Unknown]
  - Weight decreased [Recovering/Resolving]
  - Fibromyalgia [Recovered/Resolved]
  - Dysphagia [Recovering/Resolving]
  - Gastritis [Unknown]
  - Speech disorder [Not Recovered/Not Resolved]
  - Somatic symptom disorder [Unknown]
  - Headache [Unknown]
  - Renal cyst [Recovering/Resolving]
  - Gait inability [Not Recovered/Not Resolved]
  - Blindness [Recovering/Resolving]
  - Migraine [Recovered/Resolved]

NARRATIVE: CASE EVENT DATE: 20141208
